FAERS Safety Report 15560489 (Version 1)
Quarter: 2018Q4

REPORT INFORMATION
  Report Type: Spontaneous
  Country: US (occurrence: US)
  Receive Date: 20181029
  Receipt Date: 20181029
  Transmission Date: 20190205
  Serious: No
  Sender: FDA-Public Use
  Company Number: US-BRACCO-2018US04032

PATIENT

DRUGS (1)
  1. LIQUID POLIBAR PLUS [Suspect]
     Active Substance: BARIUM SULFATE
     Indication: INTESTINAL TRANSIT TIME
     Dosage: UNK

REACTIONS (2)
  - Product preparation error [Unknown]
  - Drug effect decreased [Unknown]
